FAERS Safety Report 24995918 (Version 1)
Quarter: 2025Q1

REPORT INFORMATION
  Report Type: Spontaneous
  Country: US (occurrence: US)
  Receive Date: 20250221
  Receipt Date: 20250221
  Transmission Date: 20250409
  Serious: No
  Sender: CATALYST PHARMA
  Company Number: US-CATALYST PHARMACEUTICALS-US-CATA-24-01280

PATIENT
  Sex: Male

DRUGS (2)
  1. AGAMREE [Suspect]
     Active Substance: VAMOROLONE
     Indication: Duchenne muscular dystrophy
     Route: 048
     Dates: start: 2018
  2. AGAMREE [Suspect]
     Active Substance: VAMOROLONE
     Dosage: 3 ML DAILY
     Route: 048

REACTIONS (1)
  - Weight increased [Not Recovered/Not Resolved]
